FAERS Safety Report 25723506 (Version 3)
Quarter: 2025Q4

REPORT INFORMATION
  Report Type: Spontaneous
  Country: CL (occurrence: CL)
  Receive Date: 20250825
  Receipt Date: 20251204
  Transmission Date: 20260118
  Serious: Yes (Other)
  Sender: SANOFI AVENTIS
  Company Number: CL-SA-2025SA231734

PATIENT
  Age: 75 Year
  Sex: Female
  Weight: 58 kg

DRUGS (12)
  1. APIDRA [Suspect]
     Active Substance: INSULIN GLULISINE
     Indication: Type 2 diabetes mellitus
     Dosage: 8-8-8-6
     Route: 065
     Dates: start: 20250728
  2. APIDRA [Suspect]
     Active Substance: INSULIN GLULISINE
     Indication: Diabetic metabolic decompensation
     Dosage: TOTAL 60 IU
     Dates: start: 20250730
  3. TOUJEO [Suspect]
     Active Substance: INSULIN GLARGINE
     Dosage: 22 IU
  4. TOUJEO [Suspect]
     Active Substance: INSULIN GLARGINE
     Dosage: DOSE WAS INCREASED BY 20%
     Dates: start: 20250730
  5. JARDIANCE [Concomitant]
     Active Substance: EMPAGLIFLOZIN
     Dosage: 12.5  MG, QD
  6. VALSARTAN [Concomitant]
     Active Substance: VALSARTAN
     Dosage: 320 MG, Q12H
  7. AMLODIPINE [Concomitant]
     Active Substance: AMLODIPINE BESYLATE
     Dosage: 10 MG, QD
  8. CARVEDILOL [Concomitant]
     Active Substance: CARVEDILOL
     Dosage: 12.5 MG, Q12H
  9. ERVASTIN [Concomitant]
     Dosage: 10/10 MG, QD
  10. FUROSEMIDE [Concomitant]
     Active Substance: FUROSEMIDE
     Dosage: 40 MG, QD
  11. FLUTICASONE PROPIONATE\SALMETEROL XINAFOATE [Concomitant]
     Active Substance: FLUTICASONE PROPIONATE\SALMETEROL XINAFOATE
     Dosage: TWO PUFFS, Q12H
  12. FENOTEROL HYDROBROMIDE\IPRATROPIUM BROMIDE [Concomitant]
     Active Substance: FENOTEROL HYDROBROMIDE\IPRATROPIUM BROMIDE
     Dosage: TWO PUFFS, Q8H

REACTIONS (2)
  - Diabetic metabolic decompensation [Recovered/Resolved]
  - Condition aggravated [Recovered/Resolved]

NARRATIVE: CASE EVENT DATE: 20250730
